FAERS Safety Report 11038804 (Version 2)
Quarter: 2015Q4

REPORT INFORMATION
  Report Type: Spontaneous
  Country: US (occurrence: US)
  Receive Date: 20150416
  Receipt Date: 20151022
  Transmission Date: 20160304
  Serious: Yes (Hospitalization)
  Sender: FDA-Public Use
  Company Number: US-BAYER-2015-135631

PATIENT
  Age: 25 Year
  Sex: Female
  Weight: 70.3 kg

DRUGS (2)
  1. MIRENA [Suspect]
     Active Substance: LEVONORGESTREL
     Indication: MENORRHAGIA
     Dosage: 20 MCG/24HR, CONT
     Route: 015
     Dates: start: 20090624, end: 20130501
  2. MOTRIN [Concomitant]
     Active Substance: IBUPROFEN

REACTIONS (10)
  - Emotional distress [None]
  - Device issue [None]
  - Abdominal pain upper [None]
  - Depression [None]
  - Embedded device [None]
  - Pelvic inflammatory disease [None]
  - Product use issue [None]
  - Injury [None]
  - Anxiety [None]
  - Vaginal haemorrhage [None]

NARRATIVE: CASE EVENT DATE: 200906
